FAERS Safety Report 23403053 (Version 2)
Quarter: 2024Q1

REPORT INFORMATION
  Report Type: Spontaneous
  Country: US (occurrence: US)
  Receive Date: 20240115
  Receipt Date: 20240125
  Transmission Date: 20240410
  Serious: No
  Sender: FDA-Public Use
  Company Number: US-GLAXOSMITHKLINE-US2024AMR005305

PATIENT
  Sex: Female

DRUGS (2)
  1. ZEJULA [Suspect]
     Active Substance: NIRAPARIB
     Indication: Ovarian cancer
     Dosage: 200 MG, QD
     Dates: start: 20210601
  2. ZEJULA [Suspect]
     Active Substance: NIRAPARIB
     Dosage: 100 MG, QD
     Dates: start: 202106

REACTIONS (12)
  - Hypertension [Recovering/Resolving]
  - Blood test abnormal [Recovered/Resolved]
  - White blood cell count abnormal [Recovered/Resolved]
  - Haematocrit decreased [Recovered/Resolved]
  - Constipation [Recovering/Resolving]
  - Dizziness [Recovering/Resolving]
  - Dry mouth [Recovering/Resolving]
  - Fatigue [Recovering/Resolving]
  - Peripheral swelling [Recovering/Resolving]
  - Nasopharyngitis [Not Recovered/Not Resolved]
  - Arthritis [Recovering/Resolving]
  - Arthralgia [Recovering/Resolving]
